FAERS Safety Report 5091633-0 (Version None)
Quarter: 2006Q3

REPORT INFORMATION
  Report Type: 
  Country: None (occurrence: None)
  Receive Date: 20060824
  Receipt Date: 20060811
  Transmission Date: 20061208
  Serious: Yes (Death, Hospitalization)
  Sender: FDA-Public Use
  Company Number: 2006096594

PATIENT
  Sex: Female

DRUGS (2)
  1. NEURONTIN [Suspect]
     Indication: ISCHAEMIA
     Dosage: 1200 MG (600 MG, 2 IN 1 D) ORAL
     Route: 048
     Dates: start: 20040101, end: 20060801
  2. ALL OTHER THERAPEUTIC PRODUCTS [Concomitant]

REACTIONS (2)
  - ISCHAEMIA [None]
  - MULTI-ORGAN FAILURE [None]
